FAERS Safety Report 19864795 (Version 3)
Quarter: 2021Q4

REPORT INFORMATION
  Report Type: Report from Study
  Country: JP (occurrence: JP)
  Receive Date: 20210921
  Receipt Date: 20211230
  Transmission Date: 20220303
  Serious: Yes (Death, Hospitalization)
  Sender: FDA-Public Use
  Company Number: JP-PFIZER INC-202101206784

PATIENT
  Age: 62 Year
  Sex: Male
  Weight: 63 kg

DRUGS (7)
  1. AXITINIB [Suspect]
     Active Substance: AXITINIB
     Indication: Metastatic renal cell carcinoma
     Dosage: 3 MG, 2X/DAY
     Dates: start: 20200226, end: 20200730
  2. AXITINIB [Suspect]
     Active Substance: AXITINIB
     Dosage: 3 MG, 2X/DAY
     Dates: start: 20200226, end: 20201209
  3. AXITINIB [Suspect]
     Active Substance: AXITINIB
     Dosage: 6 MG, DAILY
     Dates: start: 20200902, end: 20201006
  4. AXITINIB [Suspect]
     Active Substance: AXITINIB
     Dosage: 6 MG, DAILY
     Dates: start: 20201007, end: 20201209
  5. AVELUMAB [Suspect]
     Active Substance: AVELUMAB
     Indication: Metastatic renal cell carcinoma
     Dosage: 10 MG/KG, 1X/DAY
     Dates: start: 20200226, end: 20200730
  6. AVELUMAB [Suspect]
     Active Substance: AVELUMAB
     Dosage: 10 MG/KG
     Dates: start: 20201007, end: 20201209
  7. AMLODIPINE BESYLATE [Concomitant]
     Active Substance: AMLODIPINE BESYLATE
     Indication: Hypertension
     Dosage: UNK
     Route: 048
     Dates: end: 20210212

REACTIONS (2)
  - Cerebral infarction [Fatal]
  - Adrenal insufficiency [Recovered/Resolved]

NARRATIVE: CASE EVENT DATE: 20200731
